FAERS Safety Report 13874035 (Version 1)
Quarter: 2017Q3

REPORT INFORMATION
  Report Type: Spontaneous
  Country: GB (occurrence: GB)
  Receive Date: 20170816
  Receipt Date: 20170816
  Transmission Date: 20171127
  Serious: Yes (Disabling)
  Sender: FDA-Public Use
  Company Number: GB-MYLANLABS-2017M1049841

PATIENT

DRUGS (7)
  1. ATORVASTATIN [Suspect]
     Active Substance: ATORVASTATIN
     Indication: PRODUCT USED FOR UNKNOWN INDICATION
     Dosage: UNK
     Dates: start: 20151001
  2. LANSOPRAZOLE. [Concomitant]
     Active Substance: LANSOPRAZOLE
     Dosage: TAKE ONE OR TWO ONCE DAILY
     Dates: start: 20170404
  3. LEVOTHYROXINE. [Concomitant]
     Active Substance: LEVOTHYROXINE
     Dosage: 125 ?G, QOD
     Dates: start: 20170404
  4. LEVOTHYROXINE. [Concomitant]
     Active Substance: LEVOTHYROXINE
     Dosage: 150 ?G, QOD
     Dates: start: 20170404
  5. CARMELLOSE [Concomitant]
     Dosage: USE 1 DROP TO BOTH EYES AS REQUIRED AS RECOMMEN...
     Dates: start: 20170404
  6. ELOCON [Concomitant]
     Active Substance: MOMETASONE FUROATE
     Dosage: APPLY TO AFFECTED AREA NOCTE
     Dates: start: 20170725
  7. OPTIVE [Concomitant]
     Active Substance: CARBOXYMETHYLCELLULOSE SODIUM\GLYCERIN
     Dosage: USE  IN BOTH EYES AS NEEDED
     Dates: start: 20170404

REACTIONS (2)
  - Odynophagia [Recovered/Resolved]
  - Dysphagia [Recovered/Resolved]

NARRATIVE: CASE EVENT DATE: 20170101
